FAERS Safety Report 8159636-7 (Version None)
Quarter: 2012Q1

REPORT INFORMATION
  Report Type: 
  Country: None (occurrence: None)
  Receive Date: 20120223
  Receipt Date: 20120213
  Transmission Date: 20120608
  Serious: Yes (Death, Hospitalization)
  Sender: FDA-Public Use
  Company Number: GB-ROCHE-1040469

PATIENT
  Age: 15 Year
  Sex: Female

DRUGS (7)
  1. AMIKACIN [Concomitant]
     Dates: start: 20070304, end: 20070304
  2. PENICILLIN G POTASSIUM [Concomitant]
     Dates: start: 20070215, end: 20070215
  3. VANCOMYCIN [Concomitant]
     Dates: start: 20070227, end: 20070303
  4. SULPERAZONE [Concomitant]
     Dates: start: 20070217, end: 20070226
  5. TAMIFLU [Suspect]
     Indication: PRODUCT USED FOR UNKNOWN INDICATION
     Dates: start: 20070219, end: 20070224
  6. CEFTRIAXONE [Concomitant]
     Dates: start: 20070216, end: 20070216
  7. TAMIFLU [Suspect]
     Dates: start: 20070224, end: 20070306

REACTIONS (3)
  - PNEUMONIA [None]
  - INFLUENZA [None]
  - ACUTE RESPIRATORY DISTRESS SYNDROME [None]
